FAERS Safety Report 8559511-X (Version None)
Quarter: 2012Q2

REPORT INFORMATION
  Report Type: 
  Country: None (occurrence: None)
  Receive Date: 20120418
  Receipt Date: 20110419
  Transmission Date: 20120825
  Serious: Yes (Other)
  Sender: FDA-Public Use
  Company Number: PHHY2011US34678

PATIENT
  Sex: Female

DRUGS (9)
  1. SAMA [Concomitant]
  2. LORTAB [Concomitant]
  3. VALIUM [Concomitant]
  4. POTASSIUM (POTASSIUM) [Concomitant]
  5. LAMICTAL [Concomitant]
  6. ZORCOR [Concomitant]
  7. DIOVAN HCT [Suspect]
     Dosage: 1 DF, BID (160/12.5 MG
  8. CUSTAR [Concomitant]
  9. CYMBALTA [Concomitant]

REACTIONS (1)
  - BLOOD PRESSURE INADEQUATELY CONTROLLED [None]
